FAERS Safety Report 22354547 (Version 1)
Quarter: 2023Q2

REPORT INFORMATION
  Report Type: Spontaneous
  Country: US (occurrence: US)
  Receive Date: 20230523
  Receipt Date: 20230523
  Transmission Date: 20230722
  Serious: No
  Sender: FDA-Public Use
  Company Number: US-STERISCIENCE B.V.-2022M1051799

PATIENT
  Age: 33 Year
  Sex: Female

DRUGS (3)
  1. AMPICILLIN [Suspect]
     Active Substance: AMPICILLIN
     Dosage: UNK
  2. GENTAMICIN [Suspect]
     Active Substance: GENTAMICIN
     Dosage: UNK
  3. LACTATED RINGERS SOLUTION [Suspect]
     Active Substance: CALCIUM CHLORIDE\POTASSIUM CHLORIDE\SODIUM CHLORIDE\SODIUM LACTATE
     Dosage: 2 LITER (BOLUS)
     Route: 040

REACTIONS (1)
  - Exposure during pregnancy [Unknown]
